FAERS Safety Report 14569289 (Version 1)
Quarter: 2018Q1

REPORT INFORMATION
  Report Type: Spontaneous
  Country: FR (occurrence: FR)
  Receive Date: 20180223
  Receipt Date: 20180223
  Transmission Date: 20180509
  Serious: Yes (Life-Threatening, Hospitalization)
  Sender: FDA-Public Use
  Company Number: FR-BAUSCH-BL-2018-004926

PATIENT
  Age: 13 Year
  Sex: Female

DRUGS (1)
  1. BI-TILDIEM [Suspect]
     Active Substance: DILTIAZEM
     Indication: INTENTIONAL OVERDOSE
     Route: 048
     Dates: start: 199607, end: 199607

REACTIONS (11)
  - Sinoatrial block [Recovering/Resolving]
  - Abdominal pain [Recovering/Resolving]
  - Headache [Recovering/Resolving]
  - Suicide attempt [Recovering/Resolving]
  - Acute kidney injury [Recovering/Resolving]
  - Vertigo [Recovering/Resolving]
  - Hypercalcaemia [Recovering/Resolving]
  - Supraventricular extrasystoles [Recovering/Resolving]
  - Vomiting [Recovering/Resolving]
  - Amylase increased [Recovering/Resolving]
  - Nausea [Recovering/Resolving]

NARRATIVE: CASE EVENT DATE: 199607
